FAERS Safety Report 7472285-9 (Version None)
Quarter: 2011Q2

REPORT INFORMATION
  Report Type: 
  Country: None (occurrence: None)
  Receive Date: 20110511
  Receipt Date: 20110422
  Transmission Date: 20111010
  Serious: No
  Sender: FDA-Public Use
  Company Number: US-B.I. PHARMACEUTICALS,INC./RIDGEFIELD-2011-BP-07367BP

PATIENT
  Sex: Female

DRUGS (8)
  1. ATIVAN [Concomitant]
     Indication: ANXIETY
     Route: 048
  2. PRADAXA [Suspect]
     Indication: ANTICOAGULANT THERAPY
     Dosage: 150 MG
     Route: 048
     Dates: start: 20110308
  3. ACETAMINOPHEN [Concomitant]
     Indication: ARTHRITIS
     Route: 048
  4. NORVASC [Concomitant]
     Indication: HYPERTENSION
     Dosage: 5 MG
     Route: 048
  5. ATENOLOL [Concomitant]
     Indication: ATRIAL FIBRILLATION
     Dosage: 25 MG
     Route: 048
  6. COD LIVER OIL [Concomitant]
     Dosage: 2000 MG
     Route: 048
  7. VITAMINS B'S [Concomitant]
     Indication: PROPHYLAXIS
     Route: 048
  8. PRADAXA [Suspect]
     Indication: ATRIAL FIBRILLATION
     Dosage: 75 MG
     Route: 048
     Dates: end: 20110307

REACTIONS (2)
  - FAECES DISCOLOURED [None]
  - HEADACHE [None]
